FAERS Safety Report 26111581 (Version 2)
Quarter: 2025Q4

REPORT INFORMATION
  Report Type: Report from Study
  Country: CN (occurrence: CN)
  Receive Date: 20251202
  Receipt Date: 20251212
  Transmission Date: 20260118
  Serious: Yes (Other)
  Sender: ABBVIE
  Company Number: CN-ABBVIE-6484610

PATIENT
  Age: 48 Year
  Sex: Female
  Weight: 35 kg

DRUGS (24)
  1. RINVOQ [Suspect]
     Active Substance: UPADACITINIB
     Indication: Colitis ulcerative
     Dosage: FORM STRENGTH: 45 MILLIGRAM, LAST ADMIN DATE:2025
     Route: 048
     Dates: start: 20250709
  2. ESOMEPRAZOLE SODIUM [Concomitant]
     Active Substance: ESOMEPRAZOLE SODIUM
     Indication: Chronic gastritis
     Dates: start: 20250705
  3. NADROPARIN CALCIUM [Concomitant]
     Active Substance: NADROPARIN CALCIUM
     Indication: Anticoagulant therapy
     Dosage: DRUG END DATE: 2025
     Route: 058
     Dates: start: 20250708
  4. NADROPARIN CALCIUM [Concomitant]
     Active Substance: NADROPARIN CALCIUM
     Indication: Anticoagulant therapy
     Route: 058
     Dates: start: 20251126, end: 20251204
  5. Fat emulsion, amino acids (17) and glucose (19%) [Concomitant]
     Indication: Nutritional supplementation
     Dosage: 1026 MILLILITER
     Dates: start: 20251129, end: 20251203
  6. FUROSEMIDE [Concomitant]
     Active Substance: FUROSEMIDE
     Indication: Product used for unknown indication
     Dates: start: 20251124, end: 20251125
  7. TRAMADOL HYDROCHLORIDE [Concomitant]
     Active Substance: TRAMADOL HYDROCHLORIDE
     Indication: Postoperative analgesia
     Route: 030
     Dates: start: 20251129, end: 20251129
  8. TRAMADOL HYDROCHLORIDE [Concomitant]
     Active Substance: TRAMADOL HYDROCHLORIDE
     Indication: Postoperative analgesia
     Dates: start: 20251127, end: 20251127
  9. POTASSIUM PHOSPHATE, DIBASIC\POTASSIUM PHOSPHATE, MONOBASIC [Concomitant]
     Active Substance: POTASSIUM PHOSPHATE, DIBASIC\POTASSIUM PHOSPHATE, MONOBASIC
     Indication: Nutritional supplementation
     Dates: start: 20251124, end: 20251129
  10. POTASSIUM ASPARTATE [Concomitant]
     Active Substance: POTASSIUM ASPARTATE
     Indication: Nutritional supplementation
     Dates: start: 20251124, end: 20251125
  11. Intact Protein Enteral Nutrition [Concomitant]
     Indication: Nutritional supplementation
     Dosage: 250 MILLILITER
     Route: 048
     Dates: start: 20251122
  12. CELECOXIB [Concomitant]
     Active Substance: CELECOXIB
     Indication: Postoperative analgesia
     Dosage: CAPSULES
     Route: 048
     Dates: start: 20251129, end: 20251129
  13. CEFOPERAZONE SODIUM\SULBACTAM SODIUM [Concomitant]
     Active Substance: CEFOPERAZONE SODIUM\SULBACTAM SODIUM
     Indication: Infection prophylaxis
     Dosage: INJECTION
     Dates: start: 20251130
  14. OMEPRAZOLE SODIUM [Concomitant]
     Active Substance: OMEPRAZOLE SODIUM
     Indication: Gastrointestinal disorder prophylaxis
     Dosage: INJECTION
     Dates: start: 20251124, end: 20251125
  15. POTASSIUM CHLORIDE [Concomitant]
     Active Substance: POTASSIUM CHLORIDE
     Indication: Nutritional supplementation
     Dates: start: 20251124, end: 20251129
  16. CIPROFLOXACIN HYDROCHLORIDE [Concomitant]
     Active Substance: CIPROFLOXACIN HYDROCHLORIDE
     Indication: Infection prophylaxis
     Dosage: TABLETS
     Route: 048
     Dates: start: 20251203
  17. CEFMETAZOLE SODIUM [Concomitant]
     Active Substance: CEFMETAZOLE SODIUM
     Indication: Infection prophylaxis
     Dosage: FOR INJECTION
     Dates: start: 20251124, end: 20251126
  18. SOMATOSTATIN [Concomitant]
     Active Substance: SOMATOSTATIN
     Indication: Product used for unknown indication
     Dates: start: 20251125, end: 20251125
  19. Sodium potassium magnesium calcium and glucose [Concomitant]
     Indication: Nutritional supplementation
     Dates: start: 20251125, end: 20251125
  20. Alprostadil Dry [Concomitant]
     Indication: Product used for unknown indication
     Dosage: EMULSION FOR INJECTION
     Dates: start: 20251125, end: 20251125
  21. ALMAGATE [Concomitant]
     Active Substance: ALMAGATE
     Indication: Gastrointestinal disorder prophylaxis
     Dosage: TIME INTERVAL: 0.33333333 DAYS: SUSPENSION
     Route: 048
     Dates: start: 20251126, end: 20251129
  22. PHLOROGLUCINOL [Concomitant]
     Active Substance: PHLOROGLUCINOL
     Indication: Postoperative analgesia
     Dates: start: 20251127, end: 20251127
  23. PHLOROGLUCINOL [Concomitant]
     Active Substance: PHLOROGLUCINOL
     Indication: Postoperative analgesia
     Dates: start: 20251129, end: 20251129
  24. METRONIDAZOLE [Concomitant]
     Active Substance: METRONIDAZOLE
     Indication: Infection prophylaxis
     Dosage: TIME INTERVAL: 0.33333333 DAYS
     Route: 048
     Dates: start: 20251203

REACTIONS (6)
  - Colectomy total [Recovered/Resolved]
  - Ileostomy [Recovered/Resolved]
  - Proctectomy [Recovered/Resolved]
  - Cytomegalovirus infection [Recovering/Resolving]
  - Large intestine anastomosis [Recovered/Resolved]
  - Upper respiratory tract infection [Recovered/Resolved]

NARRATIVE: CASE EVENT DATE: 20250716
